FAERS Safety Report 6059348-X (Version None)
Quarter: 2009Q1

REPORT INFORMATION
  Report Type: 
  Country: None (occurrence: None)
  Receive Date: 20090130
  Receipt Date: 20090120
  Transmission Date: 20090719
  Serious: Yes (Other)
  Sender: FDA-Public Use
  Company Number: US-BAXTER-2009BH001457

PATIENT
  Age: 62 Year
  Sex: Female

DRUGS (1)
  1. HEPARIN [Suspect]
     Indication: CATHETERISATION CARDIAC

REACTIONS (2)
  - ACUTE RESPIRATORY DISTRESS SYNDROME [None]
  - HEPARIN-INDUCED THROMBOCYTOPENIA [None]
